FAERS Safety Report 6161071-8 (Version None)
Quarter: 2009Q2

REPORT INFORMATION
  Report Type: 
  Country: None (occurrence: None)
  Receive Date: 20090420
  Receipt Date: 20090408
  Transmission Date: 20091009
  Serious: Yes (Life-Threatening, Other)
  Sender: FDA-Public Use
  Company Number: GB-PFIZER INC-2009194804

PATIENT

DRUGS (2)
  1. SULFASALAZINE [Suspect]
     Indication: PSORIATIC ARTHROPATHY
     Dosage: 500 MG, 2X/DAY
     Route: 048
     Dates: start: 20081108, end: 20081201
  2. IBUPROFEN [Concomitant]
     Dosage: 1600 MG, UNK
     Route: 048

REACTIONS (3)
  - COUGH [None]
  - PYREXIA [None]
  - WHEEZING [None]
